FAERS Safety Report 9827124 (Version 1)
Quarter: 2014Q1

REPORT INFORMATION
  Report Type: Spontaneous
  Country: US (occurrence: US)
  Receive Date: 20140117
  Receipt Date: 20140117
  Transmission Date: 20141002
  Serious: No
  Sender: FDA-Public Use
  Company Number: US-GLAXOSMITHKLINE-A1038641A

PATIENT
  Age: 79 Year
  Sex: Female

DRUGS (1)
  1. PROMACTA [Suspect]
     Indication: THROMBOCYTOPENIC PURPURA
     Dosage: 50MG ALTERNATE DAYS
     Route: 048
     Dates: start: 20130222

REACTIONS (1)
  - Pruritus [Unknown]
